FAERS Safety Report 5696342-2 (Version None)
Quarter: 2008Q2

REPORT INFORMATION
  Report Type: 
  Country: None (occurrence: None)
  Receive Date: 20080407
  Receipt Date: 20080402
  Transmission Date: 20081010
  Serious: Yes (Hospitalization)
  Sender: FDA-Public Use
  Company Number: US-ASTRAZENECA-2008UW06616

PATIENT
  Age: 28024 Day
  Sex: Female
  Weight: 81.4 kg

DRUGS (10)
  1. ATACAND HCT [Suspect]
     Indication: HYPERTENSION
     Dosage: 32/12.5 MG
     Route: 048
     Dates: start: 20070328
  2. CADUET [Suspect]
     Route: 048
     Dates: start: 20070328
  3. TRANSHEPATIC BILIARY SYSTEM ON AVIATOR [Suspect]
     Indication: HYPERTENSION
     Dates: start: 20070328
  4. ASPIRIN [Concomitant]
  5. INSULIN INSULATARD NPH NORDISK [Concomitant]
  6. METOPROLOL TARTRATE [Concomitant]
  7. MULTI-VITAMIN [Concomitant]
  8. IRON [Concomitant]
  9. MINOXIDIL [Concomitant]
  10. FUROSEMIDE [Concomitant]

REACTIONS (2)
  - CARDIAC FAILURE CONGESTIVE [None]
  - RENAL FAILURE ACUTE [None]
